FAERS Safety Report 8602577-9 (Version None)
Quarter: 2012Q3

REPORT INFORMATION
  Report Type: 
  Country: None (occurrence: None)
  Receive Date: 20120817
  Receipt Date: 20120814
  Transmission Date: 20120928
  Serious: Yes (Hospitalization)
  Sender: FDA-Public Use
  Company Number: PHHY2010CN54894

PATIENT
  Age: 22 Year
  Sex: Male

DRUGS (5)
  1. BARACLUDE [Concomitant]
     Dosage: 0.5 MG, UNK
  2. ADEFOVIR [Concomitant]
  3. SEBIVO [Suspect]
     Dosage: 600 MG, QD
     Route: 048
     Dates: start: 20091111, end: 20100726
  4. FLUID/ELECTROLYTE REPLACEMENT THERAPY [Concomitant]
  5. SEBIVO [Suspect]
     Indication: HEPATITIS B
     Dosage: 600 MG, QD
     Route: 048
     Dates: start: 20090904, end: 20091103

REACTIONS (26)
  - BLOOD PRESSURE DECREASED [None]
  - MENTAL IMPAIRMENT [None]
  - URINE OUTPUT DECREASED [None]
  - MUSCLE SWELLING [None]
  - LUNG INFECTION [None]
  - RESPIRATORY RATE INCREASED [None]
  - MOBILITY DECREASED [None]
  - PALPITATIONS [None]
  - NAUSEA [None]
  - NEUROPATHY PERIPHERAL [None]
  - DYSPNOEA [None]
  - PLEURAL EFFUSION [None]
  - PYREXIA [None]
  - MYOPATHY [None]
  - VOMITING [None]
  - PAIN [None]
  - MUSCULAR WEAKNESS [None]
  - CHEST DISCOMFORT [None]
  - FATIGUE [None]
  - COUGH [None]
  - PAIN IN EXTREMITY [None]
  - HEART RATE INCREASED [None]
  - JUGULAR VEIN DISTENSION [None]
  - HEPATITIS B [None]
  - MYALGIA [None]
  - LACTIC ACIDOSIS [None]
